FAERS Safety Report 6477655-3 (Version None)
Quarter: 2009Q4

REPORT INFORMATION
  Report Type: 
  Country: None (occurrence: None)
  Receive Date: 20091207
  Receipt Date: 20091125
  Transmission Date: 20100525
  Serious: Yes (Hospitalization)
  Sender: FDA-Public Use
  Company Number: JP-TEVA-208234ISR

PATIENT
  Sex: Male
  Weight: 67 kg

DRUGS (10)
  1. CISPLATIN [Suspect]
     Indication: NON-SMALL CELL LUNG CANCER
     Route: 042
     Dates: start: 20090818
  2. AXITINIB [Suspect]
     Indication: NON-SMALL CELL LUNG CANCER
     Route: 048
     Dates: start: 20090818
  3. PEMETREXED [Suspect]
     Indication: NON-SMALL CELL LUNG CANCER
     Route: 042
     Dates: start: 20090818
  4. ZOLPIDEM TARTRATE [Suspect]
     Indication: INSOMNIA
     Route: 048
     Dates: start: 20090820
  5. VALSARTAN [Concomitant]
  6. AMLODIPINE BESYLATE [Concomitant]
     Dates: start: 20090819
  7. BEZAFIBRATE [Concomitant]
  8. FENOFIBRATE [Concomitant]
     Dates: start: 20090814
  9. ONDANSETRON [Concomitant]
     Dates: start: 20090819, end: 20090820
  10. MAG-LAX [Concomitant]
     Dates: start: 20090818

REACTIONS (1)
  - DEPRESSED LEVEL OF CONSCIOUSNESS [None]
